FAERS Safety Report 7332095-X (Version None)
Quarter: 2011Q1

REPORT INFORMATION
  Report Type: 
  Country: None (occurrence: None)
  Receive Date: 20110304
  Receipt Date: 20110217
  Transmission Date: 20110831
  Serious: Yes (Other)
  Sender: FDA-Public Use
  Company Number: PHHY2009CA40915

PATIENT
  Sex: Female

DRUGS (1)
  1. SANDOSTATIN LAR [Suspect]
     Indication: METASTATIC CARCINOID TUMOUR
     Dosage: 30 MG, EVERY 4 WEEKS
     Route: 030
     Dates: start: 20090723, end: 20091210

REACTIONS (9)
  - PULMONARY CONGESTION [None]
  - BREATH SOUNDS ABNORMAL [None]
  - BLOOD PRESSURE INCREASED [None]
  - PNEUMONIA [None]
  - DIARRHOEA [None]
  - CHEST DISCOMFORT [None]
  - NASOPHARYNGITIS [None]
  - COUGH [None]
  - FLATULENCE [None]
